FAERS Safety Report 5670625-4 (Version None)
Quarter: 2008Q1

REPORT INFORMATION
  Report Type: 
  Country: None (occurrence: None)
  Receive Date: 20080314
  Receipt Date: 20080314
  Transmission Date: 20080703
  Serious: Yes (Other)
  Sender: FDA-Public Use
  Company Number: None

PATIENT
  Age: 49 Year
  Sex: Female
  Weight: 69.8539 kg

DRUGS (1)
  1. TETRASIL PLUS ALL NATURAL SILVER OXYGEN AIDANCE SKINCARE/TETRASIL [Suspect]
     Indication: ANTIBIOTIC THERAPY
     Dosage: TOPICAL APPLIED FOR 2 DAYS CUTANEOUS
     Route: 003
     Dates: start: 20071105, end: 20071107

REACTIONS (12)
  - ACNE [None]
  - BONE PAIN [None]
  - DRUG TOXICITY [None]
  - ERYTHEMA [None]
  - INFECTED INSECT BITE [None]
  - LYMPH NODE PAIN [None]
  - LYMPHADENOPATHY [None]
  - MUSCULOSKELETAL PAIN [None]
  - MUSCULOSKELETAL STIFFNESS [None]
  - MYALGIA [None]
  - PAIN [None]
  - RASH [None]
